FAERS Safety Report 5512341-5 (Version None)
Quarter: 2007Q4

REPORT INFORMATION
  Report Type: 
  Country: None (occurrence: None)
  Receive Date: 20071112
  Receipt Date: 20071101
  Transmission Date: 20080405
  Serious: Yes (Hospitalization)
  Sender: FDA-Public Use
  Company Number: US-JNJFOC-20071100915

PATIENT
  Sex: Female
  Weight: 102.06 kg

DRUGS (7)
  1. DURAGESIC-100 [Suspect]
     Dosage: 2X 75 UG/HR PATCHES
     Route: 062
  2. DURAGESIC-100 [Suspect]
     Indication: COMPLEX REGIONAL PAIN SYNDROME
     Dosage: 2X 75 UG/HR PATCHES
     Route: 062
  3. NEXIUM [Concomitant]
     Indication: GASTROOESOPHAGEAL REFLUX DISEASE
     Route: 048
  4. LEXAPRO [Concomitant]
     Indication: DEPRESSION
     Route: 048
  5. VITAMIN B6 [Concomitant]
     Indication: NEURALGIA
     Route: 048
  6. LIDODERM [Concomitant]
     Indication: PAIN
     Route: 062
  7. ROZEREM [Concomitant]
     Indication: SLEEP DISORDER
     Route: 048

REACTIONS (3)
  - CARPAL TUNNEL SYNDROME [None]
  - COMPLEX REGIONAL PAIN SYNDROME [None]
  - OSTEOPOROSIS [None]
